FAERS Safety Report 25585822 (Version 2)
Quarter: 2025Q3

REPORT INFORMATION
  Report Type: Spontaneous
  Country: JP (occurrence: JP)
  Receive Date: 20250721
  Receipt Date: 20250821
  Transmission Date: 20251021
  Serious: Yes (Hospitalization, Other)
  Sender: OTSUKA
  Company Number: JP-MMM-Otsuka-60M8EX1A

PATIENT
  Age: 92 Year
  Sex: Female

DRUGS (5)
  1. REXULTI [Suspect]
     Active Substance: BREXPIPRAZOLE
     Indication: Dementia
     Dosage: 1 MG/DAY
     Route: 048
     Dates: start: 202411
  2. REXULTI [Suspect]
     Active Substance: BREXPIPRAZOLE
     Indication: Dementia
     Dosage: 0.5MG/DAY
     Route: 048
     Dates: start: 202410, end: 202411
  3. REXULTI [Suspect]
     Active Substance: BREXPIPRAZOLE
     Dosage: 0.5MG/DAY
     Route: 048
     Dates: start: 202502
  4. GALANTAMINE HYDROBROMIDE [Concomitant]
     Active Substance: GALANTAMINE HYDROBROMIDE
     Indication: Dementia
     Route: 065
     Dates: start: 202303
  5. MEMANTINE HYDROCHLORIDE [Concomitant]
     Active Substance: MEMANTINE HYDROCHLORIDE
     Indication: Dementia
     Route: 065
     Dates: start: 202305

REACTIONS (6)
  - Radius fracture [Recovered/Resolved]
  - Ulna fracture [Recovered/Resolved]
  - Humerus fracture [Recovered/Resolved]
  - Dementia [Unknown]
  - Fall [Recovered/Resolved]
  - Product use in unapproved indication [Unknown]

NARRATIVE: CASE EVENT DATE: 20241001
